FAERS Safety Report 24760501 (Version 1)
Quarter: 2024Q4

REPORT INFORMATION
  Report Type: Spontaneous
  Country: US (occurrence: US)
  Receive Date: 20241220
  Receipt Date: 20241220
  Transmission Date: 20250115
  Serious: No
  Sender: NEUROCRINE BIOSCIENCES
  Company Number: US-NEUROCRINE BIOSCIENCES INC.-2024NBI12294

PATIENT
  Sex: Female

DRUGS (2)
  1. INGREZZA [Suspect]
     Active Substance: VALBENAZINE
     Indication: Tardive dyskinesia
     Dosage: UNKNOWN
     Route: 065
  2. COGENTIN [Suspect]
     Active Substance: BENZTROPINE MESYLATE
     Indication: Product used for unknown indication
     Dosage: UNKNOWN
     Route: 065

REACTIONS (2)
  - Somnolence [Recovered/Resolved]
  - Fall [Recovered/Resolved]
